FAERS Safety Report 4709844-X (Version None)
Quarter: 2005Q3

REPORT INFORMATION
  Report Type: 
  Country: None (occurrence: None)
  Receive Date: 20050708
  Receipt Date: 20050527
  Transmission Date: 20060218
  Serious: Yes (Life-Threatening, Hospitalization)
  Sender: FDA-Public Use
  Company Number: GB-BOEHRINGER INGELHEIM PHARMACEUTICALS, INC.-2005-UK-00956UK

PATIENT
  Sex: Male

DRUGS (2)
  1. NEVIRAPINE [Suspect]
     Indication: HIV INFECTION
     Route: 048
     Dates: start: 20000906
  2. COMBIVIR [Concomitant]
     Indication: HIV INFECTION
     Dosage: AZT/600 + 3TC/300
     Route: 048
     Dates: start: 20000101

REACTIONS (2)
  - DEEP VEIN THROMBOSIS [None]
  - PULMONARY EMBOLISM [None]
